FAERS Safety Report 18244424 (Version 1)
Quarter: 2020Q3

REPORT INFORMATION
  Report Type: Spontaneous
  Country: US (occurrence: US)
  Receive Date: 20200908
  Receipt Date: 20200908
  Transmission Date: 20201103
  Serious: Yes (Hospitalization)
  Sender: FDA-Public Use
  Company Number: US-JNJFOC-A-NJ2020-206495

PATIENT
  Age: 62 Year
  Sex: Female
  Weight: 61.68 kg

DRUGS (3)
  1. OPSUMIT [Suspect]
     Active Substance: MACITENTAN
     Indication: PULMONARY ARTERIAL HYPERTENSION
     Dosage: 10 MG, QD
     Route: 048
  2. REMODULIN [Concomitant]
     Active Substance: TREPROSTINIL
  3. SILDENAFIL CITRATE. [Concomitant]
     Active Substance: SILDENAFIL CITRATE

REACTIONS (10)
  - Hypertension [Unknown]
  - Hypotension [Unknown]
  - Incorrect dose administered [Unknown]
  - Therapy non-responder [Unknown]
  - Red blood cell count abnormal [Unknown]
  - Syncope [Unknown]
  - Altered state of consciousness [Unknown]
  - Loss of consciousness [Unknown]
  - White blood cell count increased [Unknown]
  - Oxygen saturation decreased [Unknown]

NARRATIVE: CASE EVENT DATE: 20200622
